FAERS Safety Report 16583270 (Version 2)
Quarter: 2019Q3

REPORT INFORMATION
  Report Type: Spontaneous
  Country: DE (occurrence: DE)
  Receive Date: 20190717
  Receipt Date: 20190729
  Transmission Date: 20191004
  Serious: Yes (Hospitalization, Other)
  Sender: FDA-Public Use
  Company Number: DE-PFIZER INC-2019298055

PATIENT
  Age: 86 Year
  Sex: Female
  Weight: 73 kg

DRUGS (9)
  1. XARELTO [Concomitant]
     Active Substance: RIVAROXABAN
     Dosage: 20 MG, 1X/DAY 1-0-0
     Route: 048
  2. TORASEMID [Concomitant]
     Active Substance: TORSEMIDE
     Dosage: 10 MG, 1-0-0
     Route: 048
  3. AMLODIPINE BESILATE [Suspect]
     Active Substance: AMLODIPINE BESYLATE
     Dosage: 5 MG, 1X/DAY 1-0-0
     Route: 048
  4. NAPROXEN. [Suspect]
     Active Substance: NAPROXEN
     Dosage: 500 MG, AS NEEDED
     Route: 048
     Dates: end: 20170605
  5. PRAMIPEXOL [PRAMIPEXOLE] [Concomitant]
     Active Substance: PRAMIPEXOLE
     Dosage: 0.088 MG, 1X/DAY 0-0-1
     Route: 048
  6. ACTRAPHANE [Concomitant]
     Active Substance: INSULIN HUMAN
     Dosage: 30 IU, 52-0-20
     Route: 048
  7. BISOPROLOL [Concomitant]
     Active Substance: BISOPROLOL
     Dosage: 5 MG, 1X/DAY 1-0-0 AT THE TIME STOPPED
     Route: 048
  8. ATORVASTATIN [Concomitant]
     Active Substance: ATORVASTATIN
     Dosage: 60 MG, 1X/DAY 0-0-1
     Route: 048
  9. APROVEL [Concomitant]
     Active Substance: IRBESARTAN
     Dosage: 300 MG, 1-0-0
     Route: 048

REACTIONS (5)
  - Medication error [Unknown]
  - Abdominal pain upper [Unknown]
  - Haematemesis [Unknown]
  - Retching [Unknown]
  - Vomiting [Unknown]
